FAERS Safety Report 7305747-5 (Version None)
Quarter: 2011Q1

REPORT INFORMATION
  Report Type: 
  Country: None (occurrence: None)
  Receive Date: 20110222
  Receipt Date: 20110214
  Transmission Date: 20110831
  Serious: Yes (Other)
  Sender: FDA-Public Use
  Company Number: B0686403A

PATIENT
  Age: 6 Year
  Sex: Male

DRUGS (6)
  1. ERYTHROMYCIN [Suspect]
     Indication: ASTHMA
     Dosage: 200MG PER DAY
     Route: 048
     Dates: start: 20090301
  2. SERETIDE [Suspect]
     Indication: ASTHMA
     Dosage: 100MG PER DAY
     Route: 055
     Dates: start: 20090407, end: 20090511
  3. FLUTIDE [Suspect]
     Indication: ASTHMA
     Dates: start: 20081201, end: 20100830
  4. IPD [Suspect]
     Indication: ASTHMA
     Dosage: 100MG PER DAY
     Route: 048
     Dates: start: 20090301, end: 20100801
  5. ONON [Suspect]
     Indication: ASTHMA
     Dosage: 360MG PER DAY
     Dates: start: 20081201
  6. GASTER [Suspect]
     Indication: ASTHMA
     Dosage: 17MG PER DAY
     Route: 048
     Dates: start: 20090101, end: 20100501

REACTIONS (1)
  - ADRENAL INSUFFICIENCY [None]
